FAERS Safety Report 5877524-3 (Version None)
Quarter: 2008Q3

REPORT INFORMATION
  Report Type: 
  Country: None (occurrence: None)
  Receive Date: 20080911
  Receipt Date: 20080903
  Transmission Date: 20090109
  Serious: Yes (Other)
  Sender: FDA-Public Use
  Company Number: SE-WYE-H05827408

PATIENT
  Age: 25 Year
  Sex: Male
  Weight: 75 kg

DRUGS (3)
  1. GEMTUZUMAB OZOGAMICIN [Suspect]
     Indication: ACUTE MYELOID LEUKAEMIA
     Dosage: 12 MG TOTAL DOSE ADMINISTERED, FIRST COURSE
     Route: 042
     Dates: start: 20080715, end: 20080718
  2. DAUNORUBICIN HCL [Suspect]
     Indication: ACUTE MYELOID LEUKAEMIA
     Dosage: 12 MG, TOTAL DOSE ADMINISTERED, FIRST COURSE
     Route: 042
     Dates: start: 20080715
  3. CYTARABINE [Suspect]
     Indication: ACUTE MYELOID LEUKAEMIA
     Dosage: 1400 MG, TOTAL DOSE ADMINSTERED, FIRST COURSE
     Route: 042
     Dates: start: 20080715

REACTIONS (1)
  - FATIGUE [None]
